FAERS Safety Report 16793662 (Version 1)
Quarter: 2019Q3

REPORT INFORMATION
  Report Type: Report from Study
  Country: CA (occurrence: CA)
  Receive Date: 20190911
  Receipt Date: 20190911
  Transmission Date: 20191005
  Serious: Yes (Other)
  Sender: FDA-Public Use
  Company Number: CA-ORION CORPORATION ORION PHARMA-TREX2019-3307

PATIENT
  Age: 45 Year
  Sex: Female
  Weight: 126 kg

DRUGS (31)
  1. METHOTREXATE (TRADE NAME UNKNOWN) [Suspect]
     Active Substance: METHOTREXATE
     Indication: SYSTEMIC LUPUS ERYTHEMATOSUS
     Route: 065
  2. BELIMUMAB [Suspect]
     Active Substance: BELIMUMAB
     Route: 042
  3. ROSUVASTATIN CALCIUM. [Suspect]
     Active Substance: ROSUVASTATIN CALCIUM
     Indication: BLOOD CHOLESTEROL INCREASED
     Route: 065
  4. CALCIUM [Concomitant]
     Active Substance: CALCIUM
     Indication: SYSTEMIC LUPUS ERYTHEMATOSUS
     Route: 065
  5. ELAVIL [Concomitant]
     Active Substance: AMITRIPTYLINE HYDROCHLORIDE
     Route: 065
  6. FOLIC ACID. [Concomitant]
     Active Substance: FOLIC ACID
     Indication: SYSTEMIC LUPUS ERYTHEMATOSUS
     Route: 065
  7. PREDNISONE. [Concomitant]
     Active Substance: PREDNISONE
     Indication: SYSTEMIC LUPUS ERYTHEMATOSUS
     Route: 065
  8. BELIMUMAB [Suspect]
     Active Substance: BELIMUMAB
     Indication: SYSTEMIC LUPUS ERYTHEMATOSUS
     Route: 042
  9. BELIMUMAB [Suspect]
     Active Substance: BELIMUMAB
     Route: 042
  10. TECTA [Concomitant]
     Active Substance: PANTOPRAZOLE MAGNESIUM
     Route: 065
  11. TYLENOL [Concomitant]
     Active Substance: ACETAMINOPHEN
     Route: 065
  12. BELIMUMAB [Suspect]
     Active Substance: BELIMUMAB
     Route: 042
  13. ROSUVASTATIN CALCIUM. [Suspect]
     Active Substance: ROSUVASTATIN CALCIUM
     Route: 065
  14. BELIMUMAB [Suspect]
     Active Substance: BELIMUMAB
     Route: 042
  15. BELIMUMAB [Suspect]
     Active Substance: BELIMUMAB
     Route: 042
  16. BELIMUMAB [Suspect]
     Active Substance: BELIMUMAB
     Route: 042
  17. BELIMUMAB [Suspect]
     Active Substance: BELIMUMAB
     Route: 042
  18. BELIMUMAB [Suspect]
     Active Substance: BELIMUMAB
     Route: 042
  19. BELIMUMAB [Suspect]
     Active Substance: BELIMUMAB
     Route: 042
  20. DOMPERIDONE [Concomitant]
     Active Substance: DOMPERIDONE
     Route: 065
  21. AMLODIPINE BESILATE [Concomitant]
     Active Substance: AMLODIPINE BESYLATE
     Route: 065
  22. NIFEDIPINE. [Concomitant]
     Active Substance: NIFEDIPINE
     Indication: HYPERTENSION
     Route: 065
  23. REFLEX [Concomitant]
     Active Substance: MIRTAZAPINE
     Indication: PAIN IN EXTREMITY
     Route: 065
  24. SYNTHROID [Concomitant]
     Active Substance: LEVOTHYROXINE SODIUM
     Route: 065
  25. ACTONEL [Concomitant]
     Active Substance: RISEDRONATE SODIUM
     Route: 065
  26. COLACE [Concomitant]
     Active Substance: DOCUSATE SODIUM
     Route: 065
  27. ESOMEPRAZOLE MAGNESIUM TRIHYDRATE [Concomitant]
     Active Substance: ESOMEPRAZOLE MAGNESIUM
     Route: 065
  28. METHOTREXATE (TRADE NAME UNKNOWN) [Suspect]
     Active Substance: METHOTREXATE
     Route: 065
  29. ZOPICLONE [Concomitant]
     Active Substance: ZOPICLONE
     Route: 065
  30. MELOXICAM. [Concomitant]
     Active Substance: MELOXICAM
     Route: 065
  31. BELIMUMAB [Suspect]
     Active Substance: BELIMUMAB
     Route: 042

REACTIONS (44)
  - Basal cell carcinoma [Not Recovered/Not Resolved]
  - Skin lesion [Not Recovered/Not Resolved]
  - Erythema [Not Recovered/Not Resolved]
  - Gastroenteritis [Not Recovered/Not Resolved]
  - Insomnia [Not Recovered/Not Resolved]
  - Melanocytic naevus [Not Recovered/Not Resolved]
  - Oral herpes [Not Recovered/Not Resolved]
  - Sinusitis [Not Recovered/Not Resolved]
  - Uterine prolapse [Not Recovered/Not Resolved]
  - Aphasia [Not Recovered/Not Resolved]
  - Hernia [Not Recovered/Not Resolved]
  - Sinus congestion [Not Recovered/Not Resolved]
  - Smear cervix abnormal [Not Recovered/Not Resolved]
  - Arthralgia [Not Recovered/Not Resolved]
  - Blood cholesterol increased [Not Recovered/Not Resolved]
  - Confusional state [Not Recovered/Not Resolved]
  - Diarrhoea [Not Recovered/Not Resolved]
  - Fatigue [Not Recovered/Not Resolved]
  - Flushing [Not Recovered/Not Resolved]
  - Productive cough [Not Recovered/Not Resolved]
  - Tremor [Not Recovered/Not Resolved]
  - Wound [Not Recovered/Not Resolved]
  - Pain [Not Recovered/Not Resolved]
  - Skin discolouration [Not Recovered/Not Resolved]
  - Arthritis [Not Recovered/Not Resolved]
  - Cyst [Not Recovered/Not Resolved]
  - Lower respiratory tract infection [Not Recovered/Not Resolved]
  - Malaise [Not Recovered/Not Resolved]
  - Muscle spasms [Not Recovered/Not Resolved]
  - Pyrexia [Not Recovered/Not Resolved]
  - Vomiting [Not Recovered/Not Resolved]
  - Product use in unapproved indication [Unknown]
  - Acrochordon [Not Recovered/Not Resolved]
  - Arthropathy [Not Recovered/Not Resolved]
  - Epistaxis [Not Recovered/Not Resolved]
  - Nausea [Not Recovered/Not Resolved]
  - Pain in extremity [Not Recovered/Not Resolved]
  - Peripheral swelling [Not Recovered/Not Resolved]
  - Photosensitivity reaction [Not Recovered/Not Resolved]
  - Initial insomnia [Not Recovered/Not Resolved]
  - Biopsy breast [Not Recovered/Not Resolved]
  - Disability [Not Recovered/Not Resolved]
  - Ill-defined disorder [Not Recovered/Not Resolved]
  - Urticaria [Not Recovered/Not Resolved]
